FAERS Safety Report 6617915-6 (Version None)
Quarter: 2010Q1

REPORT INFORMATION
  Report Type: 
  Country: None (occurrence: None)
  Receive Date: 20100223
  Receipt Date: 20091214
  Transmission Date: 20100710
  Serious: Yes (Hospitalization)
  Sender: FDA-Public Use
  Company Number: 8054673

PATIENT
  Sex: Female

DRUGS (1)
  1. CERTOLIZUMAB PEGOL [Suspect]
     Indication: CROHN'S DISEASE
     Dosage: (400 MG 1X/28 DAYS, MONTHLY SUBCUTANEOUS)
     Route: 058
     Dates: start: 20090605

REACTIONS (3)
  - CROHN'S DISEASE [None]
  - DEVICE RELATED INFECTION [None]
  - INFECTION [None]
